FAERS Safety Report 23622375 (Version 1)
Quarter: 2024Q1

REPORT INFORMATION
  Report Type: Spontaneous
  Country: US (occurrence: None)
  Receive Date: 20240312
  Receipt Date: 20240312
  Transmission Date: 20240410
  Serious: No
  Sender: FDA-Public Use
  Company Number: None

PATIENT
  Sex: Female

DRUGS (2)
  1. GAMMAGARD LIQUID [Suspect]
     Active Substance: HUMAN IMMUNOGLOBULIN G
     Indication: Stiff person syndrome
     Dosage: OTHER STRENGTH : 20GM/200M;?OTHER FREQUENCY : 5 DAYS EVERY 4 WEE;?
     Route: 042
     Dates: start: 202109
  2. GAMMAGARD LIQUID [Suspect]
     Active Substance: HUMAN IMMUNOGLOBULIN G
     Indication: Stiff person syndrome
     Dosage: OTHER STRENGTH : 5GM/50ML;?OTHER FREQUENCY : 5 DAYS EVERY 4 WEE;?
     Route: 042
     Dates: start: 202109

REACTIONS (6)
  - Muscle rigidity [None]
  - Arthralgia [None]
  - Flank pain [None]
  - Drug ineffective [None]
  - Blood pressure increased [None]
  - Muscular weakness [None]
